FAERS Safety Report 16384364 (Version 1)
Quarter: 2019Q2

REPORT INFORMATION
  Report Type: Report from Study
  Country: DE (occurrence: DE)
  Receive Date: 20190603
  Receipt Date: 20190603
  Transmission Date: 20190711
  Serious: Yes (Other)
  Sender: FDA-Public Use
  Company Number: DE-MYLANLABS-2019M1051093

PATIENT
  Age: 28 Year
  Sex: Female

DRUGS (3)
  1. AZATHIOPRINE. [Suspect]
     Active Substance: AZATHIOPRINE
     Indication: PRODUCT USED FOR UNKNOWN INDICATION
     Dosage: UNK
     Route: 065
     Dates: start: 2016, end: 201803
  2. HUMIRA [Suspect]
     Active Substance: ADALIMUMAB
     Indication: COLITIS ULCERATIVE
     Dosage: 40 MILLIGRAM, BIWEEKLY
     Route: 058
     Dates: start: 2016, end: 201805
  3. HUMIRA [Suspect]
     Active Substance: ADALIMUMAB
     Dosage: 40 MILLIGRAM, QW
     Route: 058
     Dates: start: 201805, end: 201809

REACTIONS (3)
  - Therapeutic product effect decreased [Not Recovered/Not Resolved]
  - Liver function test abnormal [Unknown]
  - Liver injury [Unknown]

NARRATIVE: CASE EVENT DATE: 201803
